FAERS Safety Report 7151375-4 (Version None)
Quarter: 2010Q4

REPORT INFORMATION
  Report Type: 
  Country: None (occurrence: None)
  Receive Date: 20101210
  Receipt Date: 20101201
  Transmission Date: 20110411
  Serious: Yes (Other)
  Sender: FDA-Public Use
  Company Number: US-JNJFOC-20101201662

PATIENT
  Sex: Female
  Weight: 81.65 kg

DRUGS (7)
  1. SIMPONI [Suspect]
     Indication: PSORIATIC ARTHROPATHY
     Route: 058
  2. CRESTOR [Concomitant]
     Indication: BLOOD CHOLESTEROL
     Route: 048
  3. BENICAR [Concomitant]
     Indication: BLOOD PRESSURE
     Route: 048
  4. DILTIAZEM [Concomitant]
     Indication: BLOOD PRESSURE
     Route: 048
  5. FUROSEMIDE [Concomitant]
     Indication: BLOOD PRESSURE
     Route: 048
  6. METFORMIN [Concomitant]
     Indication: DIABETES MELLITUS
     Route: 048
  7. ASPIRIN [Concomitant]
     Route: 048

REACTIONS (2)
  - JOINT DISLOCATION [None]
  - NERVE COMPRESSION [None]
